FAERS Safety Report 8712477 (Version 7)
Quarter: 2013Q4

REPORT INFORMATION
  Report Type: Spontaneous
  Country: GB (occurrence: GB)
  Receive Date: 20120808
  Receipt Date: 20131011
  Transmission Date: 20140711
  Serious: Yes (Other)
  Sender: FDA-Public Use
  Company Number: PHFR2012GB004339

PATIENT
  Age: 39 Year
  Sex: Male

DRUGS (3)
  1. CLOZARIL [Suspect]
     Indication: SCHIZOPHRENIA
     Dosage: 700 MG
     Route: 048
     Dates: start: 20040531
  2. CLOZARIL [Suspect]
     Dosage: 600 MG
     Route: 048
  3. CLOZARIL [Suspect]
     Dosage: UNK
     Route: 048
     Dates: end: 20130916

REACTIONS (5)
  - Hepatitis C [Unknown]
  - Malaise [Unknown]
  - Platelet count decreased [Recovered/Resolved]
  - White blood cell count decreased [Recovered/Resolved]
  - Neutrophil count decreased [Recovered/Resolved]
